FAERS Safety Report 6984957 (Version 2)
Quarter: 2014Q2

REPORT INFORMATION
  Report Type: Spontaneous
  Country: US (occurrence: US)
  Receive Date: 20090501
  Receipt Date: 20140410
  Transmission Date: 20141212
  Serious: Yes (Life-Threatening, Hospitalization, Other)
  Sender: FDA-Public Use
  Company Number: US-ALEXION-A200900174

PATIENT
  Age: 25 None
  Sex: Female
  Weight: 158.73 kg

DRUGS (6)
  1. SOLIRIS [Suspect]
     Indication: PAROXYSMAL NOCTURNAL HAEMOGLOBINURIA
     Dosage: 600 MG, QWK
     Route: 042
     Dates: start: 20080211
  2. SOLIRIS [Suspect]
     Dosage: 900 MG, SINGLE
     Route: 042
     Dates: start: 20090217, end: 20090217
  3. SOLIRIS [Suspect]
     Dosage: 900 MG, SINGLE
     Route: 042
     Dates: start: 20090304, end: 20090304
  4. SOLIRIS [Suspect]
     Dosage: 900 MG, SINGLE
     Route: 042
     Dates: start: 20090307, end: 20090307
  5. KETOROLAC [Suspect]
     Indication: PAIN
  6. CONTRAST MEDIA [Suspect]
     Indication: COMPUTERISED TOMOGRAM
     Route: 042

REACTIONS (8)
  - Cardiac tamponade [Unknown]
  - Cardiac arrest [Recovering/Resolving]
  - Pericarditis [Unknown]
  - Renal tubular necrosis [Recovering/Resolving]
  - Haemolysis [Unknown]
  - Catheter placement [Unknown]
  - Pneumonia mycoplasmal [Unknown]
  - Packed red blood cell transfusion [Unknown]
